FAERS Safety Report 4543942-9 (Version None)
Quarter: 2005Q1

REPORT INFORMATION
  Report Type: 
  Country: None (occurrence: None)
  Receive Date: 20050104
  Receipt Date: 20041220
  Transmission Date: 20050727
  Serious: Yes (Hospitalization)
  Sender: FDA-Public Use
  Company Number: AU-JNJFOC-20041205613

PATIENT
  Age: 45 Year
  Sex: Female

DRUGS (7)
  1. RISPERDAL CONSTA [Suspect]
     Route: 030
  2. RISPERDAL CONSTA [Suspect]
     Route: 030
  3. RISPERDAL CONSTA [Suspect]
     Indication: SCHIZOPHRENIA
     Route: 030
  4. RISPERDAL [Suspect]
     Route: 049
  5. RISPERDAL [Suspect]
     Indication: SCHIZOPHRENIA
     Route: 049
  6. DIAZEPAM [Concomitant]
  7. ALBUTEROL [Concomitant]

REACTIONS (5)
  - AGGRESSION [None]
  - ANKLE FRACTURE [None]
  - FALL [None]
  - INJURY [None]
  - SUICIDAL IDEATION [None]
